FAERS Safety Report 5242241-X (Version None)
Quarter: 2007Q1

REPORT INFORMATION
  Report Type: 
  Country: None (occurrence: None)
  Receive Date: 20070215
  Receipt Date: 20070215
  Transmission Date: 20070707
  Serious: Yes (Disabling)
  Sender: FDA-Public Use
  Company Number: None

PATIENT
  Age: 49 Year
  Sex: Male
  Weight: 99.7913 kg

DRUGS (1)
  1. VOLTAREN [Suspect]
     Indication: ARTHRITIS
     Dosage: 1 TWICE DAILY
     Dates: start: 20060601, end: 20060701

REACTIONS (6)
  - ABDOMINAL DISCOMFORT [None]
  - BURNING SENSATION [None]
  - DIZZINESS [None]
  - FEELING ABNORMAL [None]
  - PAIN [None]
  - PANIC ATTACK [None]
